FAERS Safety Report 21180115 (Version 1)
Quarter: 2022Q3

REPORT INFORMATION
  Report Type: Report from Study
  Country: AU (occurrence: AU)
  Receive Date: 20220805
  Receipt Date: 20220805
  Transmission Date: 20221027
  Serious: Yes (Death, Hospitalization)
  Sender: FDA-Public Use
  Company Number: AU-ABBVIE-22K-008-4495166-00

PATIENT
  Age: 94 Year
  Sex: Male

DRUGS (1)
  1. LEUPROLIDE ACETATE [Suspect]
     Active Substance: LEUPROLIDE ACETATE
     Indication: Prostate cancer
     Route: 058
     Dates: start: 20200824, end: 20220502

REACTIONS (3)
  - Fall [Fatal]
  - Cardiac arrest [Fatal]
  - COVID-19 [Unknown]

NARRATIVE: CASE EVENT DATE: 20220701
